FAERS Safety Report 21600299 (Version 1)
Quarter: 2022Q4

REPORT INFORMATION
  Report Type: Report from Study
  Country: US (occurrence: US)
  Receive Date: 20221116
  Receipt Date: 20221116
  Transmission Date: 20230112
  Serious: Yes (Hospitalization)
  Sender: FDA-Public Use
  Company Number: US-ABBVIE-4199218

PATIENT
  Sex: Female

DRUGS (3)
  1. VENCLEXTA [Suspect]
     Active Substance: VENETOCLAX
     Indication: Acute myeloid leukaemia
     Route: 048
  2. VENCLEXTA [Suspect]
     Active Substance: VENETOCLAX
     Indication: Acute myeloid leukaemia
     Dosage: WITH FOOD AND FULL GLASS OF WATER, STRENGTH: 100 MG
     Route: 048
  3. POSACONAZOLE [Interacting]
     Active Substance: POSACONAZOLE
     Indication: Product used for unknown indication
     Route: 065

REACTIONS (5)
  - Proctalgia [Unknown]
  - Proctitis [Unknown]
  - Diarrhoea [Unknown]
  - Drug interaction [Unknown]
  - Colitis [Unknown]
